FAERS Safety Report 13111606 (Version 1)
Quarter: 2017Q1

REPORT INFORMATION
  Report Type: Spontaneous
  Country: KR (occurrence: KR)
  Receive Date: 20170112
  Receipt Date: 20170112
  Transmission Date: 20170428
  Serious: Yes (Hospitalization)
  Sender: FDA-Public Use
  Company Number: KR-BRISTOL-MYERS SQUIBB COMPANY-BMS-2017-001153

PATIENT

DRUGS (2)
  1. SUNVEPRA [Suspect]
     Active Substance: ASUNAPREVIR
     Indication: HEPATITIS C
     Dosage: UNK
     Route: 065
  2. DAKLINZA [Suspect]
     Active Substance: DACLATASVIR
     Indication: HEPATITIS C
     Dosage: N/A
     Route: 065

REACTIONS (3)
  - Vomiting [Unknown]
  - Nausea [Unknown]
  - Electrolyte imbalance [Unknown]
